FAERS Safety Report 9106556 (Version 1)
Quarter: 2013Q1

REPORT INFORMATION
  Report Type: Spontaneous
  Country: CA (occurrence: CA)
  Receive Date: 20130221
  Receipt Date: 20130221
  Transmission Date: 20140127
  Serious: Yes (Other)
  Sender: FDA-Public Use
  Company Number: CA-PERRIGO-13CA001431

PATIENT
  Age: 76 Year
  Sex: Female
  Weight: 40.82 kg

DRUGS (4)
  1. NAPROXEN [Suspect]
     Indication: PAIN
     Dosage: 1 TABLET, ONCE
     Route: 048
     Dates: start: 20130210, end: 20130210
  2. OXYCONTIN [Concomitant]
     Indication: PAIN
     Dosage: UNK
     Route: 065
  3. CORTEF [Concomitant]
     Indication: ADDISON^S DISEASE
     Dosage: UNK
     Route: 065
  4. LORAZEPAM [Concomitant]
     Indication: INSOMNIA
     Dosage: UNK
     Route: 048

REACTIONS (4)
  - Hallucination, visual [Recovered/Resolved]
  - Cognitive disorder [Recovered/Resolved]
  - Insomnia [Recovered/Resolved]
  - Feeling abnormal [Recovered/Resolved]
